FAERS Safety Report 9263157 (Version 1)
Quarter: 2013Q2

REPORT INFORMATION
  Report Type: Spontaneous
  Country: FR (occurrence: None)
  Receive Date: 20130426
  Receipt Date: 20130426
  Transmission Date: 20140414
  Serious: Yes (Life-Threatening, Hospitalization)
  Sender: FDA-Public Use
  Company Number: 2013CP000042

PATIENT
  Age: 38 Year
  Sex: Female

DRUGS (13)
  1. PERFALGAN [Suspect]
     Indication: PAIN
     Route: 042
     Dates: start: 20111123
  2. ATROPINE [Suspect]
     Dosage: 1 MG TOTAL
     Route: 042
     Dates: start: 20111123
  3. NAROPEINE [Suspect]
     Indication: ANAESTHESIA
     Route: 042
     Dates: start: 20111123
  4. DROLEPTAN [Suspect]
     Indication: PROPHYLAXIS
     Route: 042
     Dates: start: 20111123
  5. PHLOROGLUCINOL [Suspect]
     Indication: GASTROINTESTINAL DISORDER
     Route: 042
     Dates: start: 20111123
  6. SUPRANE [Suspect]
     Indication: ANAESTHESIA
     Dates: start: 20111123
  7. PROPOFOL (PROPOFOL) [Suspect]
     Indication: ANAESTHESIA
     Route: 042
     Dates: start: 20111123
  8. SUFENTANIL [Suspect]
     Indication: ANAESTHESIA
     Route: 042
     Dates: start: 20111123
  9. NIMBEX [Suspect]
     Indication: ANAESTHESIA
     Route: 042
     Dates: start: 20111123
  10. ONDANSETRON (ONDANSETRON) [Suspect]
     Indication: PROPHYLAXIS
     Route: 042
     Dates: start: 20111123
  11. NEOSTIGMINE METHYLSULFATE [Suspect]
     Route: 042
     Dates: start: 20111123
  12. CEFAZOLINE [Suspect]
     Indication: PROPHYLAXIS
     Route: 051
     Dates: start: 20111123
  13. PROFENID (KETOPROFEN) [Suspect]
     Indication: PAIN
     Route: 042
     Dates: start: 20111123

REACTIONS (6)
  - Circulatory collapse [None]
  - Myocardial stunning [None]
  - Dyspnoea [None]
  - Hypoxia [None]
  - Post procedural complication [None]
  - Myocarditis [None]
